FAERS Safety Report 8552050-1 (Version None)
Quarter: 2012Q3

REPORT INFORMATION
  Report Type: 
  Country: None (occurrence: None)
  Receive Date: 20120731
  Receipt Date: 20120721
  Transmission Date: 20120928
  Serious: Yes (Hospitalization, Other)
  Sender: FDA-Public Use
  Company Number: DE-PAR PHARMACEUTICAL, INC-2012SCPR004523

PATIENT

DRUGS (13)
  1. KETAMINE HCL [Concomitant]
     Indication: ANAESTHESIA
     Dosage: 20-25 MG, UNKNOWN
     Route: 065
  2. KETAMINE HCL [Concomitant]
     Dosage: 20 MG, UNKNOWN
     Route: 065
  3. SUCCINYLCHOLINE CHLORIDE [Concomitant]
     Indication: MUSCLE RELAXANT THERAPY
     Dosage: 10-15 MG, UNKNOWN
     Route: 065
  4. VENLAFAXINE HYDROCHOLRIDE [Suspect]
     Dosage: 75 MG, / DAY
     Route: 065
  5. DONEPEZIL HCL [Concomitant]
     Indication: PSYCHOTHERAPY
     Dosage: 10 MG, / DAY
     Route: 065
  6. CLONIDINE [Concomitant]
     Indication: PRODUCT USED FOR UNKNOWN INDICATION
     Dosage: 75 MCG, / DAY
     Route: 065
  7. PANTOPRAZOLE [Concomitant]
     Indication: PRODUCT USED FOR UNKNOWN INDICATION
     Dosage: 40 MG, / DAY
     Route: 065
  8. QUETIAPINE [Concomitant]
     Indication: PSYCHOTHERAPY
     Dosage: 300 MG, / DAY
     Route: 065
  9. QUETIAPINE [Concomitant]
     Dosage: 150 MG, / DAY
     Route: 065
  10. DONEPEZIL HCL [Concomitant]
     Dosage: 5 MG, / DAY
     Route: 065
  11. TORSEMIDE [Concomitant]
     Indication: PRODUCT USED FOR UNKNOWN INDICATION
     Dosage: 5 MG, / DAY
     Route: 065
  12. LEVOTHYROXINE SODIUM [Concomitant]
     Indication: PRODUCT USED FOR UNKNOWN INDICATION
     Dosage: 25 MCG, / DAY
     Route: 065
  13. SUCCINYLCHOLINE CHLORIDE [Concomitant]
     Dosage: 10 MG, UNKNOWN
     Route: 065

REACTIONS (2)
  - CARDIAC ARREST [None]
  - RHYTHM IDIOVENTRICULAR [None]
